FAERS Safety Report 4766279-1 (Version None)
Quarter: 2005Q3

REPORT INFORMATION
  Report Type: 
  Country: None (occurrence: None)
  Receive Date: 20050912
  Receipt Date: 20050901
  Transmission Date: 20060218
  Serious: Yes (Death)
  Sender: FDA-Public Use
  Company Number: US-BRISTOL-MYERS SQUIBB COMPANY-13097860

PATIENT
  Age: 60 Year
  Sex: Female

DRUGS (2)
  1. PACLITAXEL [Suspect]
     Dates: start: 20050621, end: 20050722
  2. PARAPLATIN [Suspect]
     Dates: start: 20050621, end: 20050722

REACTIONS (1)
  - DEATH [None]
